FAERS Safety Report 5859697-1 (Version None)
Quarter: 2008Q3

REPORT INFORMATION
  Report Type: 
  Country: None (occurrence: None)
  Receive Date: 20080827
  Receipt Date: 20080826
  Transmission Date: 20090109
  Serious: Yes (Other)
  Sender: FDA-Public Use
  Company Number: US-BRISTOL-MYERS SQUIBB COMPANY-14244594

PATIENT
  Age: 12 Year
  Sex: Male
  Weight: 46 kg

DRUGS (1)
  1. ABILIFY [Suspect]
     Indication: PSYCHOTIC DISORDER
     Dosage: STARTED WITH 2MG QD FOR 1 WEEK, THEN INCREASED TO 5MG QD AS PLANNED
     Dates: start: 20080522

REACTIONS (2)
  - BLOOD ALKALINE PHOSPHATASE INCREASED [None]
  - NAUSEA [None]
